FAERS Safety Report 4592727-6 (Version None)
Quarter: 2005Q1

REPORT INFORMATION
  Report Type: 
  Country: None (occurrence: None)
  Receive Date: 20050228
  Receipt Date: 20050217
  Transmission Date: 20050727
  Serious: Yes (Death, Other)
  Sender: FDA-Public Use
  Company Number: ES-BRISTOL-MYERS SQUIBB COMPANY-12873519

PATIENT
  Sex: Male

DRUGS (4)
  1. CISPLATIN [Suspect]
     Indication: GLIOBLASTOMA MULTIFORME
     Dosage: DAY 1
  2. TEMOZOLOMIDE [Suspect]
     Indication: GLIOBLASTOMA MULTIFORME
     Dosage: DAYS 1 TO 5
  3. DEXAMETHASONE [Concomitant]
     Indication: BRAIN OEDEMA
  4. MANNITOL [Concomitant]

REACTIONS (8)
  - FEBRILE NEUTROPENIA [None]
  - KARNOFSKY SCALE WORSENED [None]
  - LEUKOPENIA [None]
  - MALIGNANT NEOPLASM PROGRESSION [None]
  - NOCARDIOSIS [None]
  - PNEUMONIA [None]
  - PNEUMONIA BACTERIAL [None]
  - THROMBOCYTOPENIA [None]
